FAERS Safety Report 6128863-2 (Version None)
Quarter: 2009Q1

REPORT INFORMATION
  Report Type: 
  Country: None (occurrence: None)
  Receive Date: 20090320
  Receipt Date: 20090305
  Transmission Date: 20090719
  Serious: Yes (Other)
  Sender: FDA-Public Use
  Company Number: 2009MB000028

PATIENT

DRUGS (11)
  1. KEFLEX [Suspect]
     Indication: DRUG USE FOR UNKNOWN INDICATION
     Dosage: 1000 MG;BID
  2. LYRICA [Suspect]
     Indication: DRUG USE FOR UNKNOWN INDICATION
  3. DIGITOXIN TAB [Concomitant]
  4. LASIX [Concomitant]
  5. THYREX [Concomitant]
  6. AQUAPHORIL [Concomitant]
  7. NOMEXOR [Concomitant]
  8. DANCOR [Concomitant]
  9. NITROGLYCERIN [Concomitant]
  10. FENTANYL-25 [Concomitant]
  11. MARCUMAR [Concomitant]

REACTIONS (1)
  - CHOREA [None]
